FAERS Safety Report 8899243 (Version 1)
Quarter: 2012Q4

REPORT INFORMATION
  Report Type: 
  Country: US (occurrence: US)
  Receive Date: 20121109
  Receipt Date: 20121109
  Transmission Date: 20130627
  Serious: Yes (Life-Threatening, Hospitalization, Other)
  Sender: FDA-Public Use
  Company Number: US-TEVA-369035USA

PATIENT
  Age: 2 Year
  Sex: Female

DRUGS (12)
  1. VINCRISTINE [Suspect]
     Indication: HEPATOBLASTOMA
     Dosage: 0.7mg (1.5 mg/m2)
     Route: 042
  2. IRINOTECAN [Concomitant]
     Indication: HEPATOBLASTOMA
     Route: 065
  3. CISPLATIN [Concomitant]
     Indication: HEPATOBLASTOMA
     Route: 065
  4. FLUOROURACIL [Concomitant]
     Indication: HEPATOBLASTOMA
     Route: 065
  5. DOXORUBICIN [Concomitant]
     Indication: HEPATOBLASTOMA
     Route: 065
  6. SODIUM DIOCTYL SULFOSUCCINATE [Concomitant]
     Route: 048
  7. COTRIMOXAZOLE [Concomitant]
     Indication: PROPHYLAXIS
     Dosage: three days per week
     Route: 048
  8. ONDANSETRON [Concomitant]
     Dosage: as needed
     Route: 065
  9. LORAZEPAM [Concomitant]
     Dosage: as needed
     Route: 065
  10. OXYCODONE [Concomitant]
     Dosage: as needed
     Route: 065
  11. LOPERAMIDE [Concomitant]
     Dosage: as needed
     Route: 065
  12. PARACETAMOL [Concomitant]
     Dosage: as needed
     Route: 065

REACTIONS (2)
  - Cardiac arrest [Recovered/Resolved]
  - Seizure like phenomena [Recovered/Resolved]
